FAERS Safety Report 8024770-9 (Version None)
Quarter: 2012Q1

REPORT INFORMATION
  Report Type: 
  Country: None (occurrence: None)
  Receive Date: 20120105
  Receipt Date: 20111228
  Transmission Date: 20120608
  Serious: Yes (Hospitalization)
  Sender: FDA-Public Use
  Company Number: US-JNJFOC-20111204918

PATIENT
  Sex: Male
  Weight: 38 kg

DRUGS (6)
  1. INFLIXIMAB, RECOMBINANT [Suspect]
     Indication: CROHN'S DISEASE
     Route: 042
     Dates: start: 20090306
  2. PEPTAMEN [Concomitant]
  3. INFLIXIMAB, RECOMBINANT [Suspect]
     Route: 042
     Dates: start: 20091015, end: 20091015
  4. ANTIBIOTICS [Concomitant]
     Indication: INFLAMMATORY BOWEL DISEASE
  5. HUMIRA [Concomitant]
     Indication: CROHN'S DISEASE
     Dates: start: 20091111
  6. MESALAMINE [Concomitant]
     Route: 048

REACTIONS (1)
  - CROHN'S DISEASE [None]
